FAERS Safety Report 6271226-X (Version None)
Quarter: 2009Q3

REPORT INFORMATION
  Report Type: 
  Country: None (occurrence: None)
  Receive Date: 20090717
  Receipt Date: 20090710
  Transmission Date: 20100115
  Serious: Yes (Hospitalization)
  Sender: FDA-Public Use
  Company Number: CN-JNJFOC-20090505394

PATIENT
  Age: 31 Year
  Sex: Male

DRUGS (1)
  1. SPORANOX [Suspect]
     Indication: ONYCHOMYCOSIS
     Route: 048

REACTIONS (4)
  - ACUTE LEUKAEMIA [None]
  - CHEST PAIN [None]
  - NASOPHARYNGITIS [None]
  - THROMBOCYTOSIS [None]
